FAERS Safety Report 19920643 (Version 1)
Quarter: 2021Q4

REPORT INFORMATION
  Report Type: Report from Study
  Country: TH (occurrence: TH)
  Receive Date: 20211005
  Receipt Date: 20211005
  Transmission Date: 20220303
  Serious: Yes (Other)
  Sender: FDA-Public Use
  Company Number: TH-NOVARTISPH-NVSC2020TH260803

PATIENT
  Age: 51 Year
  Sex: Female

DRUGS (42)
  1. KISQALI [Suspect]
     Active Substance: RIBOCICLIB
     Indication: Breast cancer metastatic
     Dosage: 3 DF, QD (3 TABS/DAY)
     Route: 048
  2. KISQALI [Suspect]
     Active Substance: RIBOCICLIB
     Dosage: 2 DF, QD (2 TABS/DAY FOR 21 DAYS THEN STOP 7 DAYS)
     Route: 048
  3. KISQALI [Suspect]
     Active Substance: RIBOCICLIB
     Dosage: 200 MG 3X1 PC MORNING
     Route: 048
     Dates: start: 20200128
  4. KISQALI [Suspect]
     Active Substance: RIBOCICLIB
     Dosage: 200 MG 2X1 PC
     Route: 065
     Dates: start: 20200204
  5. KISQALI [Suspect]
     Active Substance: RIBOCICLIB
     Dosage: 200 MG 2X1 PC
     Route: 048
     Dates: start: 20200218, end: 20200222
  6. KISQALI [Suspect]
     Active Substance: RIBOCICLIB
     Dosage: 200 MG 2X1 PC
     Route: 065
     Dates: start: 20200303
  7. KISQALI [Suspect]
     Active Substance: RIBOCICLIB
     Dosage: 200 MG
     Route: 065
     Dates: start: 20200317
  8. KISQALI [Suspect]
     Active Substance: RIBOCICLIB
     Dosage: 200 MG 2X1 PC MORNING (C2W3)
     Route: 065
     Dates: start: 20200303
  9. KISQALI [Suspect]
     Active Substance: RIBOCICLIB
     Dosage: 200 MG 2X1 PC MORNING (C2W3-2)
     Route: 065
     Dates: start: 20200331
  10. KISQALI [Suspect]
     Active Substance: RIBOCICLIB
     Dosage: 200 MG 2X1 PC MORNING (W3-W4)
     Route: 065
     Dates: start: 20200414
  11. KISQALI [Suspect]
     Active Substance: RIBOCICLIB
     Dosage: 200 MG 2 TABS FOR EVEN DAY, 1 TAB FOR ODD DAY
     Route: 065
     Dates: start: 20200428
  12. KISQALI [Suspect]
     Active Substance: RIBOCICLIB
     Dosage: 200 MG 2 TABS FOR EVEN DAY, 1 TAB FOR ODD DAY
     Route: 048
     Dates: start: 20200512
  13. KISQALI [Suspect]
     Active Substance: RIBOCICLIB
     Dosage: 200 MG 2 TAB PC MORNING FOR EVEN DAY 3WK THEN OFF 1WK
     Route: 048
     Dates: start: 20200526
  14. KISQALI [Suspect]
     Active Substance: RIBOCICLIB
     Dosage: 200 MG 2 TAB PC MORNING FOR ODD DAY 3WK THEN OFF 1WK
     Route: 048
     Dates: start: 20200526
  15. KISQALI [Suspect]
     Active Substance: RIBOCICLIB
     Dosage: 200 MG 2X1 PC MORNING 3WK THEN OFF 1WK
     Route: 048
     Dates: start: 20200623
  16. KISQALI [Suspect]
     Active Substance: RIBOCICLIB
     Dosage: 200 MG 2X1 PC MORNING 3WK THEN OFF 1WK
     Route: 065
     Dates: start: 20200721
  17. KISQALI [Suspect]
     Active Substance: RIBOCICLIB
     Dosage: 200 MG 2 TAB PC MORNING 3WK THEN OFF 1WK
     Route: 048
     Dates: start: 20200818
  18. KISQALI [Suspect]
     Active Substance: RIBOCICLIB
     Dosage: 200 MG 2 TAB PC MORNING 3WK THEN OFF 1WK
     Route: 048
     Dates: start: 20200915
  19. FEMARA [Suspect]
     Active Substance: LETROZOLE
     Indication: Product used for unknown indication
     Dosage: 2.5 MG 1X1 PC MORNING
     Route: 048
     Dates: start: 20200128
  20. FEMARA [Suspect]
     Active Substance: LETROZOLE
     Dosage: 2.5 MG 1 PC MORNING
     Route: 048
     Dates: start: 20200204
  21. FEMARA [Suspect]
     Active Substance: LETROZOLE
     Dosage: 2.5 MG 1 PC MORNING
     Route: 048
     Dates: start: 20200218, end: 20200222
  22. FEMARA [Suspect]
     Active Substance: LETROZOLE
     Dosage: 2.5 MG 1X1 PC MORNING
     Route: 065
     Dates: start: 20200303
  23. FEMARA [Suspect]
     Active Substance: LETROZOLE
     Dosage: 2.5 MG
     Route: 065
     Dates: start: 20200317
  24. FEMARA [Suspect]
     Active Substance: LETROZOLE
     Dosage: 2.5 MG 1 TAB PC MORNING
     Route: 065
     Dates: start: 20200303
  25. FEMARA [Suspect]
     Active Substance: LETROZOLE
     Dosage: 2.5 MG 1 TAB PC MORNING
     Route: 065
     Dates: start: 20200331
  26. FEMARA [Suspect]
     Active Substance: LETROZOLE
     Dosage: 2.5 MG 1 TAB PC MORNING
     Route: 048
     Dates: start: 20200414
  27. FEMARA [Suspect]
     Active Substance: LETROZOLE
     Dosage: 2.5 MG 1 TAB PC MORNING
     Route: 048
     Dates: start: 20200428
  28. FEMARA [Suspect]
     Active Substance: LETROZOLE
     Dosage: 2.5 MG 1 TAB PC MORNING
     Route: 048
     Dates: start: 20200512
  29. FEMARA [Suspect]
     Active Substance: LETROZOLE
     Dosage: 2.5 MG 1 TAB PC MORNING
     Route: 048
     Dates: start: 20200526
  30. FEMARA [Suspect]
     Active Substance: LETROZOLE
     Dosage: 2.5 MG 1X1 PC MORNING
     Route: 048
     Dates: start: 20200623
  31. FEMARA [Suspect]
     Active Substance: LETROZOLE
     Dosage: 2.5 MG 1X1 PC MORNING
     Route: 048
     Dates: start: 20200721
  32. FEMARA [Suspect]
     Active Substance: LETROZOLE
     Dosage: 2.5 MG 1 TAB PC MORNING
     Route: 048
     Dates: start: 20200818
  33. FEMARA [Suspect]
     Active Substance: LETROZOLE
     Dosage: 2.5 MG 1 TAB PC MORNING
     Route: 048
     Dates: start: 20200915
  34. VITAMIN D3 [Concomitant]
     Active Substance: CHOLECALCIFEROL
     Indication: Product used for unknown indication
     Dosage: 0.25 MG 1X1 PC MORNING
     Route: 065
     Dates: start: 20200331
  35. VITAMIN D3 [Concomitant]
     Active Substance: CHOLECALCIFEROL
     Dosage: 0.25 MG 1X1 PC MORNING
     Route: 065
     Dates: start: 20200623
  36. VITAMIN D3 [Concomitant]
     Active Substance: CHOLECALCIFEROL
     Dosage: 0.25 MG 1X1 PC MORNING
     Route: 065
     Dates: start: 20200721
  37. ONEALFA [Concomitant]
     Active Substance: ALFACALCIDOL
     Indication: Product used for unknown indication
     Dosage: 0.25 MG 1 TAB PC MORNING
     Route: 065
     Dates: start: 20200414
  38. ONEALFA [Concomitant]
     Active Substance: ALFACALCIDOL
     Dosage: 0.25 MG 1 TAB PC MORNING
     Route: 065
     Dates: start: 20200428
  39. ONEALFA [Concomitant]
     Active Substance: ALFACALCIDOL
     Dosage: 0.25 MG 1 TAB PC MORNING
     Route: 048
     Dates: start: 20200512
  40. ONEALFA [Concomitant]
     Active Substance: ALFACALCIDOL
     Dosage: 0.25 MG ORAL 1 TAB PC MORNING
     Route: 048
     Dates: start: 20200526
  41. ONEALFA [Concomitant]
     Active Substance: ALFACALCIDOL
     Dosage: 0.25 MG ORAL 2 TAB PC MORNING 3WK THEN OFF 1WK
     Route: 048
     Dates: start: 20200818
  42. ONEALFA [Concomitant]
     Active Substance: ALFACALCIDOL
     Dosage: 0.25 MG ORAL 1 TAB PC MORNING 3WK THEN OFF 1WK
     Route: 048
     Dates: start: 20200915

REACTIONS (4)
  - Neutropenia [Unknown]
  - Platelet count abnormal [Unknown]
  - Fatigue [Unknown]
  - Inappropriate schedule of product administration [Unknown]

NARRATIVE: CASE EVENT DATE: 20200218
